FAERS Safety Report 13512794 (Version 3)
Quarter: 2017Q2

REPORT INFORMATION
  Report Type: Report from Study
  Country: None (occurrence: CA)
  Receive Date: 20170504
  Receipt Date: 20170624
  Transmission Date: 20170830
  Serious: Yes (Other)
  Sender: FDA-Public Use
  Company Number: CA-ABBVIE-17K-028-1962641-00

PATIENT
  Sex: Female

DRUGS (1)
  1. HUMIRA [Suspect]
     Active Substance: ADALIMUMAB
     Indication: PSORIATIC ARTHROPATHY
     Route: 058
     Dates: start: 20170313, end: 2017

REACTIONS (4)
  - Herpes zoster [Unknown]
  - Amnesia [Unknown]
  - Meningitis [Unknown]
  - Headache [Unknown]

NARRATIVE: CASE EVENT DATE: 2017
